FAERS Safety Report 8834800 (Version 1)
Quarter: 2012Q4

REPORT INFORMATION
  Report Type: 
  Country: US (occurrence: US)
  Receive Date: 20121010
  Receipt Date: 20121010
  Transmission Date: 20130627
  Serious: Yes (Hospitalization)
  Sender: FDA-Public Use
  Company Number: US-GLAXOSMITHKLINE-A0995981A

PATIENT
  Sex: Female

DRUGS (2)
  1. LAMICTAL [Suspect]
     Indication: BIPOLAR DISORDER
     Dosage: 50MG Twice per day
     Route: 048
     Dates: start: 201208, end: 201209
  2. WELLBUTRIN [Concomitant]

REACTIONS (11)
  - Acute hepatic failure [Not Recovered/Not Resolved]
  - Rash [Unknown]
  - Jaundice [Unknown]
  - Nausea [Unknown]
  - Gastrointestinal disorder [Unknown]
  - Pruritus [Unknown]
  - Burning sensation [Unknown]
  - Hyperventilation [Unknown]
  - Somnolence [Unknown]
  - Dysuria [Unknown]
  - Malaise [Unknown]
